FAERS Safety Report 18326751 (Version 2)
Quarter: 2020Q4

REPORT INFORMATION
  Report Type: Report from Study
  Country: KR (occurrence: KR)
  Receive Date: 20200930
  Receipt Date: 20201013
  Transmission Date: 20210113
  Serious: Yes (Hospitalization, Other)
  Sender: FDA-Public Use
  Company Number: KR-CELLTRION INC.-2020KR023697

PATIENT

DRUGS (7)
  1. TRUXIMA [Suspect]
     Active Substance: RITUXIMAB-ABBS
     Dosage: 500MG AND 100MG (TOTAL 570MG) CYCLE 2
     Route: 042
     Dates: start: 20200707
  2. TRUXIMA [Suspect]
     Active Substance: RITUXIMAB-ABBS
     Dosage: 500MG AND 100MG (TOTAL 570MG) CYCLE 2
     Route: 042
     Dates: start: 20200707
  3. TRUXIMA [Suspect]
     Active Substance: RITUXIMAB-ABBS
     Dosage: 500MG AND 100MG (TOTAL 570MG) CYCLE 3
     Route: 042
     Dates: start: 20200805
  4. TRUXIMA [Suspect]
     Active Substance: RITUXIMAB-ABBS
     Dosage: 500MG AND 100MG (TOTAL 570MG) CYCLE 3
     Route: 042
     Dates: start: 20200805
  5. TACENOL [Concomitant]
     Indication: PAIN PROPHYLAXIS
     Dosage: 2 TABLET, PRN
     Route: 048
     Dates: start: 20200912, end: 20200916
  6. TRUXIMA [Suspect]
     Active Substance: RITUXIMAB-ABBS
     Indication: DIFFUSE LARGE B-CELL LYMPHOMA
     Dosage: 500MG AND 100MG (TOTAL 570MG) CYCLE 1
     Route: 042
     Dates: start: 20200608
  7. TRUXIMA [Suspect]
     Active Substance: RITUXIMAB-ABBS
     Dosage: 500MG AND 100MG (TOTAL 570MG) CYCLE 1
     Route: 042
     Dates: start: 20200608

REACTIONS (4)
  - Expired product administered [Unknown]
  - Neutropenia [Unknown]
  - Febrile neutropenia [Recovered/Resolved]
  - Underdose [Unknown]

NARRATIVE: CASE EVENT DATE: 20200608
